FAERS Safety Report 5041535-0 (Version None)
Quarter: 2006Q2

REPORT INFORMATION
  Report Type: 
  Country: None (occurrence: None)
  Receive Date: 20060628
  Receipt Date: 20060615
  Transmission Date: 20061013
  Serious: Yes (Other)
  Sender: FDA-Public Use
  Company Number: CHNY2005FR02327

PATIENT
  Age: 9 Year
  Sex: Female
  Weight: 26.4 kg

DRUGS (3)
  1. SCOPODERM TTS          (HYOSCINE HYDROBROMIDE) [Suspect]
     Indication: BRONCHIAL DISORDER
     Dosage: 0.5 MG, Q72H, TRANSDERMAL
     Route: 062
     Dates: start: 20051001, end: 20051109
  2. DEPAKENE [Concomitant]
  3. FORLAX              (MACROGOL) [Concomitant]

REACTIONS (4)
  - LABORATORY TEST INTERFERENCE [None]
  - TOOTH LOSS [None]
  - TOOTH SOCKET HAEMORRHAGE [None]
  - VON WILLEBRAND'S DISEASE [None]
